FAERS Safety Report 7570945-2 (Version None)
Quarter: 2011Q2

REPORT INFORMATION
  Report Type: 
  Country: None (occurrence: None)
  Receive Date: 20110622
  Receipt Date: 20110622
  Transmission Date: 20111010
  Serious: Yes (Other)
  Sender: FDA-Public Use
  Company Number: None

PATIENT
  Age: 83 Year
  Sex: Female
  Weight: 79.3795 kg

DRUGS (7)
  1. ALENDRONATE SODIUM [Suspect]
     Dosage: ONE PILL WEEKLY  3/26   4/2  +  4/23
  2. ATENOLOL [Concomitant]
  3. CALCIUM CARBONATE [Concomitant]
  4. SYNTHROID [Concomitant]
  5. ASPIRIN [Concomitant]
  6. PANTOPRAZE [Concomitant]
  7. NITROGLYCERIN [Concomitant]

REACTIONS (8)
  - PALPITATIONS [None]
  - OEDEMA MOUTH [None]
  - GLOSSODYNIA [None]
  - LIP BLISTER [None]
  - MALAISE [None]
  - PAIN [None]
  - MOUTH INJURY [None]
  - DYSPEPSIA [None]
